FAERS Safety Report 14385164 (Version 2)
Quarter: 2018Q4

REPORT INFORMATION
  Report Type: Spontaneous
  Country: US (occurrence: US)
  Receive Date: 20180115
  Receipt Date: 20181108
  Transmission Date: 20190204
  Serious: Yes (Other)
  Sender: FDA-Public Use
  Company Number: US-SA-2016SA236149

PATIENT
  Age: 46 Year
  Sex: Female
  Weight: 70.3 kg

DRUGS (6)
  1. ELLENCE [Concomitant]
     Active Substance: EPIRUBICIN HYDROCHLORIDE
  2. EFUDEX [Concomitant]
     Active Substance: FLUOROURACIL
  3. TAXOTERE [Suspect]
     Active Substance: DOCETAXEL
     Indication: BREAST CANCER
     Dosage: UNK UNK, QOW
     Route: 042
     Dates: start: 20061130, end: 20061130
  4. TAXOTERE [Suspect]
     Active Substance: DOCETAXEL
     Dosage: UNK UNK, QOW
     Route: 042
     Dates: start: 20070223, end: 20070223
  5. NEOSAR [Concomitant]
     Active Substance: CYCLOPHOSPHAMIDE
  6. METOPROLOL. [Concomitant]
     Active Substance: METOPROLOL

REACTIONS (6)
  - Impaired work ability [Unknown]
  - Alopecia [Recovering/Resolving]
  - Psychological trauma [Unknown]
  - Emotional distress [Unknown]
  - Pain [Unknown]
  - Anxiety [Unknown]

NARRATIVE: CASE EVENT DATE: 200706
